FAERS Safety Report 16098164 (Version 3)
Quarter: 2019Q2

REPORT INFORMATION
  Report Type: Report from Study
  Country: BR (occurrence: BR)
  Receive Date: 20190320
  Receipt Date: 20190425
  Transmission Date: 20190711
  Serious: Yes (Other)
  Sender: FDA-Public Use
  Company Number: BR-UCBSA-2019010895

PATIENT
  Age: 49 Year
  Sex: Male
  Weight: 103 kg

DRUGS (3)
  1. DIPIRONA [Concomitant]
     Active Substance: METAMIZOLE
     Indication: DENGUE FEVER
     Dosage: 40 DROPS WHENEVR FEELS PAIN
     Route: 048
     Dates: start: 20190310
  2. CERTOLIZUMAB PEGOL [Suspect]
     Active Substance: CERTOLIZUMAB PEGOL
     Indication: RHEUMATOID ARTHRITIS
     Dosage: 200 MG, EV 2 WEEKS(QOW)
     Route: 058
     Dates: start: 201810
  3. PARACETAMOL [Concomitant]
     Active Substance: ACETAMINOPHEN
     Indication: DENGUE FEVER
     Dosage: 500 MG, 2X/DAY (BID)
     Route: 048
     Dates: start: 20190310

REACTIONS (2)
  - Pain in extremity [Not Recovered/Not Resolved]
  - Dengue fever [Recovered/Resolved]

NARRATIVE: CASE EVENT DATE: 20190310
